FAERS Safety Report 6173338-8 (Version None)
Quarter: 2009Q2

REPORT INFORMATION
  Report Type: 
  Country: None (occurrence: None)
  Receive Date: 20090428
  Receipt Date: 20090413
  Transmission Date: 20091009
  Serious: Yes (Other)
  Sender: FDA-Public Use
  Company Number: 2009001135

PATIENT
  Age: 48 Year
  Sex: Male
  Weight: 70.6 kg

DRUGS (6)
  1. ERLOTINIB (ERLOTINIB) (TABLET) (ERLOTINIB) [Suspect]
     Indication: NON-SMALL CELL LUNG CANCER
     Dosage: (150 MG,QD),ORAL
     Route: 048
     Dates: start: 20090310, end: 20090329
  2. LOXONIN (LOXOPROFEN SODIUM) [Concomitant]
  3. MUCOSTA (REBAMIPIDE) [Concomitant]
  4. MAGMITT (MAGNESIUM OXIDE) [Concomitant]
  5. ZOLPIDEM TARTRATE [Concomitant]
  6. PRIMPERAN TAB [Concomitant]

REACTIONS (3)
  - DIARRHOEA [None]
  - HYPERKALAEMIA [None]
  - NAUSEA [None]
